FAERS Safety Report 17471382 (Version 1)
Quarter: 2020Q1

REPORT INFORMATION
  Report Type: Other
  Country: PT (occurrence: PT)
  Receive Date: 20200228
  Receipt Date: 20200228
  Transmission Date: 20200409
  Serious: Yes (Other)
  Sender: FDA-Public Use
  Company Number: PT-CELLTRION INC.-2020PT019605

PATIENT

DRUGS (4)
  1. VINCRISTINA TEVA [Concomitant]
     Active Substance: VINCRISTINE
     Indication: SPLENIC MARGINAL ZONE LYMPHOMA
     Route: 042
  2. CYCLOPHOSPHAMIDE. [Concomitant]
     Active Substance: CYCLOPHOSPHAMIDE
     Indication: SPLENIC MARGINAL ZONE LYMPHOMA
     Route: 042
  3. TRUXIMA [Suspect]
     Active Substance: RITUXIMAB-ABBS
     Indication: SPLENIC MARGINAL ZONE LYMPHOMA
     Dosage: 375 MG/M2
     Route: 042
     Dates: start: 20190218, end: 20190218
  4. PREDNISOLONE. [Concomitant]
     Active Substance: PREDNISOLONE
     Indication: SPLENIC MARGINAL ZONE LYMPHOMA
     Route: 048

REACTIONS (5)
  - Product use in unapproved indication [Unknown]
  - Dyspnoea [Recovered/Resolved]
  - Hyperhidrosis [Recovered/Resolved]
  - Chest discomfort [Recovered/Resolved]
  - Malaise [Recovered/Resolved]

NARRATIVE: CASE EVENT DATE: 20190218
